FAERS Safety Report 20206006 (Version 1)
Quarter: 2021Q4

REPORT INFORMATION
  Report Type: Spontaneous
  Country: US (occurrence: None)
  Receive Date: 20211217
  Receipt Date: 20211217
  Transmission Date: 20220303
  Serious: Yes (Other)
  Sender: FDA-Public Use
  Company Number: None

PATIENT
  Age: 52 Year
  Sex: Male

DRUGS (1)
  1. VALSARTAN [Suspect]
     Active Substance: VALSARTAN
     Dosage: FREQUENCY : DAILY;?
     Route: 048
     Dates: start: 20211205, end: 20211207

REACTIONS (1)
  - Rash [None]

NARRATIVE: CASE EVENT DATE: 20211207
